FAERS Safety Report 13446684 (Version 1)
Quarter: 2017Q2

REPORT INFORMATION
  Report Type: Spontaneous
  Country: US (occurrence: US)
  Receive Date: 20170414
  Receipt Date: 20170414
  Transmission Date: 20170830
  Serious: No
  Sender: FDA-Public Use
  Company Number: None

PATIENT
  Age: 34 Year
  Sex: Female
  Weight: 72.64 kg

DRUGS (1)
  1. MIRENA [Suspect]
     Active Substance: LEVONORGESTREL

REACTIONS (11)
  - Condition aggravated [None]
  - Post procedural haemorrhage [None]
  - Abdominal pain [None]
  - Device difficult to use [None]
  - Embedded device [None]
  - Post procedural complication [None]
  - Acne [None]
  - Vaginal haemorrhage [None]
  - Pain [None]
  - Weight increased [None]
  - Mood swings [None]

NARRATIVE: CASE EVENT DATE: 20170327
